FAERS Safety Report 21809510 (Version 1)
Quarter: 2023Q1

REPORT INFORMATION
  Report Type: Spontaneous
  Country: US (occurrence: US)
  Receive Date: 20230103
  Receipt Date: 20230103
  Transmission Date: 20230418
  Serious: Yes (Hospitalization)
  Sender: FDA-Public Use
  Company Number: US-BRISTOL-MYERS SQUIBB COMPANY-2023-000234

PATIENT
  Age: 43 Year
  Sex: Male

DRUGS (1)
  1. THALOMID [Suspect]
     Active Substance: THALIDOMIDE
     Indication: Neoplasm malignant
     Dosage: TAKE 1 CAPSULE BY MOUTH AT BEDTIME DAILY TAKE AT LEAST 1 HOUR AFTER EVENING MEAL
     Route: 048
     Dates: start: 20221014

REACTIONS (1)
  - Hospitalisation [Unknown]
